FAERS Safety Report 24528817 (Version 1)
Quarter: 2024Q4

REPORT INFORMATION
  Report Type: Spontaneous
  Country: US (occurrence: None)
  Receive Date: 20241018
  Receipt Date: 20241018
  Transmission Date: 20250115
  Serious: Yes (Hospitalization)
  Sender: Public
  Company Number: None

PATIENT
  Age: 61 Year
  Sex: Female

DRUGS (1)
  1. HUMIRA [Suspect]
     Active Substance: ADALIMUMAB
     Indication: Rheumatoid arthritis
     Dosage: FREQUENCY : EVERY OTHER WEEK;?
     Route: 058
     Dates: start: 20240504, end: 20240911

REACTIONS (11)
  - Infection [None]
  - Pyrexia [None]
  - Acute kidney injury [None]
  - Respiratory failure [None]
  - Confusional state [None]
  - Anaemia [None]
  - Metabolic acidosis [None]
  - Renal tubular acidosis [None]
  - Proteinuria [None]
  - Hypergammaglobulinaemia [None]
  - Sjogren^s syndrome [None]

NARRATIVE: CASE EVENT DATE: 20241001
